FAERS Safety Report 21952670 (Version 1)
Quarter: 2023Q1

REPORT INFORMATION
  Report Type: Report from Study
  Country: BR (occurrence: BR)
  Receive Date: 20230203
  Receipt Date: 20230203
  Transmission Date: 20230417
  Serious: Yes (Other)
  Sender: FDA-Public Use
  Company Number: BR-CELLTRION INC.-2023BR002266

PATIENT

DRUGS (1)
  1. INFLIXIMAB [Suspect]
     Active Substance: INFLIXIMAB
     Indication: Rheumatoid arthritis
     Dosage: 1 AMPOULE, EVERY 8 WEEKS
     Route: 042
     Dates: start: 20220928

REACTIONS (3)
  - Surgery [Unknown]
  - Pain [Unknown]
  - Treatment delayed [Unknown]
